FAERS Safety Report 5475188-4 (Version None)
Quarter: 2007Q4

REPORT INFORMATION
  Report Type: 
  Country: None (occurrence: None)
  Receive Date: 20071002
  Receipt Date: 20070920
  Transmission Date: 20080405
  Serious: Yes (Other)
  Sender: FDA-Public Use
  Company Number: US-PFIZER INC-2007078854

PATIENT
  Sex: Female
  Weight: 80.909 kg

DRUGS (6)
  1. XALATAN [Suspect]
     Indication: GLAUCOMA
  2. OXYGEN [Concomitant]
  3. MONTELUKAST SODIUM [Concomitant]
  4. IPRATROPIUM BROMIDE [Concomitant]
  5. ALBUTEROL [Concomitant]
  6. SPIRIVA [Concomitant]

REACTIONS (2)
  - CATARACT OPERATION [None]
  - PRURITUS [None]
